FAERS Safety Report 8181654 (Version 3)
Quarter: 2020Q1

REPORT INFORMATION
  Report Type: Report from Study
  Country: JP (occurrence: JP)
  Receive Date: 20111014
  Receipt Date: 20200213
  Transmission Date: 20200409
  Serious: Yes (Death, Hospitalization, Other)
  Sender: FDA-Public Use
  Company Number: JP-ALEXION PHARMACEUTICALS INC.-A201101533

PATIENT
  Age: 77 Year
  Sex: Male

DRUGS (5)
  1. BLOOD TRANSFUSION, AUXILIARY PRODUCTS [Concomitant]
     Active Substance: HUMAN RED BLOOD CELL
  2. SOLIRIS [Suspect]
     Active Substance: ECULIZUMAB
     Dosage: UNK
  3. STEROID ANTIBACTERIALS [Concomitant]
     Active Substance: UNSPECIFIED INGREDIENT
     Dosage: UNK
  4. PREDNISOLONE. [Concomitant]
     Active Substance: PREDNISOLONE
     Dosage: 10 MG, QD
     Dates: start: 20060303, end: 20110127
  5. SOLIRIS [Suspect]
     Active Substance: ECULIZUMAB
     Indication: PAROXYSMAL NOCTURNAL HAEMOGLOBINURIA
     Dosage: 900 MG, Q2W
     Route: 042
     Dates: start: 20110114, end: 20111208

REACTIONS (10)
  - Aortic stenosis [Fatal]
  - Diabetes mellitus [Unknown]
  - Renal failure [Recovering/Resolving]
  - Aortic valve incompetence [Fatal]
  - Herpes zoster [Unknown]
  - Tachycardia [Recovering/Resolving]
  - Haemolysis [Unknown]
  - Dementia [Unknown]
  - Cardiac failure [Recovering/Resolving]
  - Cardiac failure [Fatal]

NARRATIVE: CASE EVENT DATE: 2011
